FAERS Safety Report 16858266 (Version 3)
Quarter: 2019Q4

REPORT INFORMATION
  Report Type: Spontaneous
  Country: JP (occurrence: JP)
  Receive Date: 20190926
  Receipt Date: 20191209
  Transmission Date: 20200122
  Serious: Yes (Hospitalization, Other)
  Sender: FDA-Public Use
  Company Number: JP-PFIZER INC-2019416039

PATIENT
  Age: 78 Year
  Sex: Female
  Weight: 43 kg

DRUGS (8)
  1. CELECOX [Suspect]
     Active Substance: CELECOXIB
     Indication: CHONDROCALCINOSIS PYROPHOSPHATE
     Dosage: 100 MG, 2X/DAY
     Route: 048
     Dates: start: 20190917, end: 20190919
  2. CELECOX [Suspect]
     Active Substance: CELECOXIB
     Indication: PAIN MANAGEMENT
  3. LACTEC D [CALCIUM CHLORIDE DIHYDRATE;GLUCOSE;POTASSIUM CHLORIDE;SODIUM [Concomitant]
     Indication: HEAT ILLNESS
     Dosage: 500 ML, 1X/DAY
     Route: 041
     Dates: start: 20190912, end: 20191001
  4. PRIMPERAN [Concomitant]
     Active Substance: METOCLOPRAMIDE HYDROCHLORIDE
     Indication: HEAT ILLNESS
     Dosage: 10 MG, 1X/DAY
     Route: 042
     Dates: start: 20190912, end: 20190925
  5. NEXIUM [Concomitant]
     Active Substance: ESOMEPRAZOLE MAGNESIUM
     Indication: GASTROOESOPHAGEAL REFLUX DISEASE
     Dosage: 20 MG, 1X/DAY
     Route: 048
     Dates: start: 20180208
  6. MEYLON [Concomitant]
     Active Substance: SODIUM BICARBONATE
     Indication: HEAT ILLNESS
     Dosage: 20 ML, 1X/DAY
     Route: 042
     Dates: start: 20190912, end: 20190919
  7. BFLUID [Concomitant]
     Active Substance: AMINO ACIDS\DEXTROSE\ELECTROLYTES NOS\VITAMINS
     Indication: HEAT ILLNESS
     Dosage: 500 ML, 1X/DAY
     Route: 041
     Dates: start: 20190912, end: 20190919
  8. ROXATIDINE ACETATE HYDROCHLORIDE [Suspect]
     Active Substance: ROXATIDINE ACETATE HYDROCHLORIDE
     Indication: GASTROOESOPHAGEAL REFLUX DISEASE
     Dosage: 75 MG, 2X/DAY
     Route: 048
     Dates: start: 20190917, end: 20190919

REACTIONS (4)
  - Leukopenia [Not Recovered/Not Resolved]
  - Hepatic function abnormal [Recovered/Resolved]
  - Neutropenia [Recovered/Resolved]
  - Off label use [Unknown]

NARRATIVE: CASE EVENT DATE: 20190917
